FAERS Safety Report 5296742-9 (Version None)
Quarter: 2007Q2

REPORT INFORMATION
  Report Type: 
  Country: None (occurrence: None)
  Receive Date: 20070413
  Receipt Date: 20070403
  Transmission Date: 20071010
  Serious: Yes (Other)
  Sender: FDA-Public Use
  Company Number: GB-PFIZER INC-2007026911

PATIENT
  Age: 80 Year
  Sex: Female
  Weight: 52.2 kg

DRUGS (5)
  1. LINEZOLID [Suspect]
     Indication: POSTOPERATIVE WOUND INFECTION
     Route: 048
     Dates: start: 20070301, end: 20070313
  2. GLICLAZIDE [Concomitant]
     Route: 048
  3. METFORMIN [Concomitant]
     Route: 048
  4. RAMIPRIL [Concomitant]
     Route: 048
  5. SINEMET [Concomitant]
     Route: 048

REACTIONS (5)
  - ANAEMIA [None]
  - ANOREXIA [None]
  - NAUSEA [None]
  - SOMNOLENCE [None]
  - VOMITING [None]
